FAERS Safety Report 6681604-2 (Version None)
Quarter: 2010Q2

REPORT INFORMATION
  Report Type: 
  Country: None (occurrence: None)
  Receive Date: 20100414
  Receipt Date: 20100412
  Transmission Date: 20101027
  Serious: Yes (Other)
  Sender: FDA-Public Use
  Company Number: FR-BRISTOL-MYERS SQUIBB COMPANY-14988620

PATIENT
  Sex: Female

DRUGS (3)
  1. COAPROVEL FILM-COATED TABS [Suspect]
  2. CLAVENTIN [Suspect]
     Indication: INFECTION
  3. GENTAMICIN [Suspect]
     Indication: INFECTION

REACTIONS (2)
  - CELL DEATH [None]
  - CHOLESTASIS [None]
